FAERS Safety Report 14847684 (Version 2)
Quarter: 2018Q2

REPORT INFORMATION
  Report Type: Report from Study
  Country: CA (occurrence: CA)
  Receive Date: 20180504
  Receipt Date: 20180529
  Transmission Date: 20180711
  Serious: Yes (Other)
  Sender: FDA-Public Use
  Company Number: CA-GLAXOSMITHKLINE-CA2017GSK071655

PATIENT
  Sex: Female

DRUGS (4)
  1. MEPOLIZUMAB [Suspect]
     Active Substance: MEPOLIZUMAB
     Dosage: 100 MG, Z
     Route: 042
  2. MEPOLIZUMAB [Suspect]
     Active Substance: MEPOLIZUMAB
     Dosage: 100 MG, Z
     Route: 042
  3. MEPOLIZUMAB [Suspect]
     Active Substance: MEPOLIZUMAB
     Dosage: 100 MG, Z
     Route: 042
  4. MEPOLIZUMAB [Suspect]
     Active Substance: MEPOLIZUMAB
     Indication: ASTHMA
     Dosage: 100 MG, Z(MONTHLY)
     Route: 042

REACTIONS (8)
  - Heart rate increased [Unknown]
  - Sinusitis [Unknown]
  - Asthma [Unknown]
  - Asthenia [Unknown]
  - Dyspnoea [Unknown]
  - Wound infection [Not Recovered/Not Resolved]
  - Blood pressure increased [Unknown]
  - Drug ineffective [Unknown]
